FAERS Safety Report 19710769 (Version 2)
Quarter: 2022Q1

REPORT INFORMATION
  Report Type: Spontaneous
  Country: JP (occurrence: JP)
  Receive Date: 20210816
  Receipt Date: 20220314
  Transmission Date: 20220423
  Serious: Yes (Death, Other)
  Sender: FDA-Public Use
  Company Number: JP-ALLERGAN-2128314US

PATIENT
  Sex: Female

DRUGS (5)
  1. LINACLOTIDE [Suspect]
     Active Substance: LINACLOTIDE
     Indication: Constipation
     Dosage: 0.5 MG, QD, ACTUAL: 0.5 MG/DAY, UNKNOWN FREQ
     Route: 048
     Dates: start: 20210707
  2. MAGNESIUM OXIDE [Concomitant]
     Active Substance: MAGNESIUM OXIDE
     Dosage: UNK UNK, UNKNOWN FREQ.
     Route: 065
  3. THROMBIN [Concomitant]
     Active Substance: THROMBIN
     Dosage: UNK
     Dates: start: 20210618
  4. AMPICILLIN AND SULBACTAM [Concomitant]
     Active Substance: AMPICILLIN SODIUM\SULBACTAM SODIUM
     Dosage: 1.5 G, TID
     Dates: start: 20210622
  5. MEROPENEM [Concomitant]
     Active Substance: MEROPENEM
     Dosage: 1 DF, BID
     Dates: start: 20210706

REACTIONS (1)
  - Ileus [Fatal]
